FAERS Safety Report 15746853 (Version 1)
Quarter: 2018Q4

REPORT INFORMATION
  Report Type: Spontaneous
  Country: US (occurrence: US)
  Receive Date: 20181220
  Receipt Date: 20181220
  Transmission Date: 20190205
  Serious: Yes (Other)
  Sender: FDA-Public Use
  Company Number: PHHY2018US190457

PATIENT
  Age: 56 Year
  Sex: Female

DRUGS (3)
  1. METHOTREXATE. [Suspect]
     Active Substance: METHOTREXATE
     Indication: CHOROIDAL EFFUSION
     Dosage: UNK
     Route: 065
  2. ADALIMUMAB [Suspect]
     Active Substance: ADALIMUMAB
     Indication: CHOROIDAL EFFUSION
     Dosage: UNK
     Route: 065
  3. PREDNISONE. [Suspect]
     Active Substance: PREDNISONE
     Indication: CHOROIDAL EFFUSION
     Dosage: UNK
     Route: 048

REACTIONS (6)
  - Transaminases increased [Unknown]
  - Pyrexia [Unknown]
  - Chills [Unknown]
  - Product use in unapproved indication [Unknown]
  - Acute pulmonary histoplasmosis [Unknown]
  - Cough [Unknown]
